FAERS Safety Report 5084418-2 (Version None)
Quarter: 2006Q3

REPORT INFORMATION
  Report Type: 
  Country: None (occurrence: None)
  Receive Date: 20060821
  Receipt Date: 20060817
  Transmission Date: 20061208
  Serious: Yes (Hospitalization)
  Sender: FDA-Public Use
  Company Number: US-GLAXOSMITHKLINE-A0617117A

PATIENT
  Age: 75 Year
  Sex: Male

DRUGS (4)
  1. AVANDIA [Suspect]
     Dosage: 4MG PER DAY
     Route: 048
  2. INSULIN [Concomitant]
  3. METFORMIN [Concomitant]
  4. PLAVIX [Concomitant]

REACTIONS (4)
  - ABDOMINAL DISTENSION [None]
  - FATIGUE [None]
  - FLUID RETENTION [None]
  - WEIGHT INCREASED [None]
